FAERS Safety Report 5136816-6 (Version None)
Quarter: 2006Q4

REPORT INFORMATION
  Report Type: 
  Country: None (occurrence: None)
  Receive Date: 20061018
  Receipt Date: 20060816
  Transmission Date: 20070319
  Serious: Yes (Hospitalization, Other)
  Sender: FDA-Public Use
  Company Number: 2006BH012809

PATIENT
  Age: 76 Year
  Sex: Male

DRUGS (4)
  1. IMMUNE GLOBULIN INTRAVENOUS (HUMAN) [Suspect]
     Indication: THROMBOCYTOPENIA
     Dates: start: 20060801, end: 20060801
  2. CHLORAMBUCIL [Concomitant]
  3. FLUDARABINE [Concomitant]
  4. CYCLOPHOSPHAMIDE [Concomitant]

REACTIONS (4)
  - ANAEMIA HAEMOLYTIC AUTOIMMUNE [None]
  - ANTIBODY TEST POSITIVE [None]
  - ANTINUCLEAR ANTIBODY POSITIVE [None]
  - CROSSMATCH INCOMPATIBLE [None]
